FAERS Safety Report 25046582 (Version 2)
Quarter: 2025Q3

REPORT INFORMATION
  Report Type: Spontaneous
  Country: EU (occurrence: EU)
  Receive Date: 20250306
  Receipt Date: 20250802
  Transmission Date: 20251021
  Serious: Yes (Death, Hospitalization, Other)
  Sender: ALEXION PHARMACEUTICALS
  Company Number: EU-AstraZeneca-CH-00814971A

PATIENT
  Sex: Female
  Weight: 68 kg

DRUGS (3)
  1. DAPAGLIFLOZIN [Suspect]
     Active Substance: DAPAGLIFLOZIN
     Indication: Chronic kidney disease
     Dosage: 10 MILLIGRAM, QD
     Dates: start: 20240417, end: 20241216
  2. Glucoza [Concomitant]
     Route: 065
  3. CANDESARTAN [Concomitant]
     Active Substance: CANDESARTAN

REACTIONS (11)
  - Sepsis [Unknown]
  - Cardiac arrest [Fatal]
  - Cardio-respiratory arrest [Unknown]
  - Necrotising fasciitis [Unknown]
  - White blood cell count increased [Unknown]
  - Neutrophil count increased [Unknown]
  - Haemoglobin decreased [Unknown]
  - Blood creatinine increased [Unknown]
  - Red blood cell sedimentation rate increased [Unknown]
  - Urine protein/creatinine ratio increased [Unknown]
  - Blood glucose increased [Unknown]

NARRATIVE: CASE EVENT DATE: 20241205
